FAERS Safety Report 4797300-2 (Version None)
Quarter: 2005Q4

REPORT INFORMATION
  Report Type: 
  Country: None (occurrence: None)
  Receive Date: 20051013
  Receipt Date: 20051011
  Transmission Date: 20060501
  Serious: Yes (Other)
  Sender: FDA-Public Use
  Company Number: GB-GLAXOSMITHKLINE-B0396989A

PATIENT
  Sex: Female

DRUGS (4)
  1. SEROXAT [Suspect]
     Indication: DEPRESSION
  2. VALIUM [Concomitant]
  3. BETA-BLOCKER [Concomitant]
  4. TRICYCLIC ANTI DEPRESSANT [Concomitant]

REACTIONS (17)
  - ANXIETY [None]
  - CHILLS [None]
  - CLEFT PALATE [None]
  - CONGENITAL ANOMALY [None]
  - DRUG EXPOSURE DURING PREGNANCY [None]
  - DYSPNOEA [None]
  - FATIGUE [None]
  - FEAR [None]
  - FEELING COLD [None]
  - HEART DISEASE CONGENITAL [None]
  - HYPERHIDROSIS [None]
  - INSOMNIA [None]
  - PAIN [None]
  - PALPITATIONS [None]
  - SELF-INJURIOUS IDEATION [None]
  - SENSORY DISTURBANCE [None]
  - SUICIDAL IDEATION [None]
